FAERS Safety Report 11300937 (Version 1)
Quarter: 2015Q3

REPORT INFORMATION
  Report Type: Spontaneous
  Country: US (occurrence: US)
  Receive Date: 20150722
  Receipt Date: 20150722
  Transmission Date: 20151125
  Serious: No
  Sender: FDA-Public Use
  Company Number: US-ELI_LILLY_AND_COMPANY-US201203003226

PATIENT
  Age: 15 Year
  Sex: Female

DRUGS (1)
  1. HUMATROPE [Suspect]
     Active Substance: SOMATROPIN
     Indication: PITUITARY TUMOUR REMOVAL
     Dosage: 1 MG, QD
     Dates: start: 20120229

REACTIONS (3)
  - Rash [Not Recovered/Not Resolved]
  - Injection site mass [Not Recovered/Not Resolved]
  - Incorrect dose administered [Unknown]
